FAERS Safety Report 10035970 (Version 2)
Quarter: 2014Q2

REPORT INFORMATION
  Report Type: Spontaneous
  Country: US (occurrence: US)
  Receive Date: 20140325
  Receipt Date: 20140508
  Transmission Date: 20141212
  Serious: Yes (Other)
  Sender: FDA-Public Use
  Company Number: US-PFIZER INC-2014080849

PATIENT
  Age: 62 Year
  Sex: Male
  Weight: 123 kg

DRUGS (15)
  1. XALKORI [Suspect]
     Indication: LUNG ADENOCARCINOMA
     Dosage: 250 MG, 2X/DAY
     Route: 048
     Dates: start: 20140211
  2. ALBUTEROL SULFATE [Concomitant]
     Dosage: 1 DF, 2X/DAY, AS NEEDED
  3. METOPROLOL TARTRATE [Concomitant]
     Dosage: 100 MG, DAILY
     Route: 048
  4. OXYCODONE/ACETAMINOPHEN [Concomitant]
     Dosage: 10 MG/325 MG EVERY 4 HRS
     Route: 048
  5. SYMBICORT [Concomitant]
     Dosage: 2 PUFFS OF 160/4.5 MCG/ACT, DAILY
  6. VENTOLIN HFA [Concomitant]
     Dosage: 2 PUFFS OF 108 (90 BASE) MCG/ACT) EVERY 4 HOURS AS NEEDED
  7. METHYLPREDNISOLONE [Concomitant]
     Dosage: 32 MG, SINGLE
     Dates: start: 20140410, end: 20140417
  8. CLONIDINE [Concomitant]
     Dosage: UNK, DAILY, AS NEEDED
     Route: 048
     Dates: end: 20140305
  9. DILTIAZEM HCL [Concomitant]
     Dosage: 180 MG, DAILY (CAPSULE SR 24 HR)
     Route: 048
     Dates: end: 20140402
  10. HYDROCHLOROTHIAZIDE [Concomitant]
     Dosage: UNK, DAILY
     Route: 048
     Dates: end: 20140305
  11. LISINOPRIL [Concomitant]
     Dosage: UNK
     Route: 048
     Dates: end: 20140305
  12. OXYCONTIN [Concomitant]
     Dosage: UNK, 2X/DAY
     Route: 048
     Dates: end: 20140305
  13. POTASSIUM CHLORIDE [Concomitant]
     Dosage: 20 MEQ, DAILY
     Route: 048
     Dates: end: 20140305
  14. TEMAZEPAM [Concomitant]
     Dosage: UNK
     Route: 048
     Dates: end: 20140305
  15. VERAPAMIL HCL [Concomitant]
     Dosage: UNK  (CAPSULE SR 24 HR)
     Route: 048
     Dates: end: 20140305

REACTIONS (11)
  - Blood pressure decreased [Unknown]
  - Syncope [Unknown]
  - Urinary retention [Unknown]
  - Blood glucose increased [Unknown]
  - Fatigue [Unknown]
  - Asthenia [Unknown]
  - Pleural effusion [Unknown]
  - Anaemia [Unknown]
  - Paraesthesia [Unknown]
  - Prostatitis [Unknown]
  - Blood sodium decreased [Unknown]
